FAERS Safety Report 14381635 (Version 1)
Quarter: 2018Q1

REPORT INFORMATION
  Report Type: Spontaneous
  Country: SE (occurrence: SE)
  Receive Date: 20180112
  Receipt Date: 20180112
  Transmission Date: 20180509
  Serious: Yes (Hospitalization)
  Sender: FDA-Public Use
  Company Number: SE-TEVA-2018-SE-843724

PATIENT
  Sex: Male

DRUGS (1)
  1. ENALAPRIL TEVA [Suspect]
     Active Substance: ENALAPRIL MALEATE
     Route: 048

REACTIONS (1)
  - Drug ineffective [Unknown]
